FAERS Safety Report 6795168-6 (Version None)
Quarter: 2010Q2

REPORT INFORMATION
  Report Type: 
  Country: None (occurrence: None)
  Receive Date: 20100625
  Receipt Date: 20100625
  Transmission Date: 20101027
  Serious: Yes (Hospitalization, Other)
  Sender: FDA-Public Use
  Company Number: PHHO2009US04657

PATIENT
  Sex: Female
  Weight: 77.6 kg

DRUGS (7)
  1. DIOVAN [Suspect]
  2. RAD 666 [Suspect]
     Indication: CHEMOTHERAPY MULTIPLE AGENTS SYSTEMIC
     Dosage: 10 MG, QD
     Route: 048
     Dates: start: 20090212, end: 20090305
  3. RAD 666 [Suspect]
     Dosage: UNK
     Dates: start: 20090307
  4. RAD 666 [Suspect]
     Dosage: UNK
     Dates: end: 20090406
  5. RAD 666 [Suspect]
     Dosage: UNK
     Dates: end: 20090409
  6. PLACEBO COMP-PLA+ [Suspect]
     Indication: PANCREATIC NEUROENDOCRINE TUMOUR
     Dosage: PLACEBO
     Dates: start: 20081126
  7. PLACEBO COMP-PLA+ [Suspect]
     Dosage: UNK

REACTIONS (29)
  - ASTHENIA [None]
  - ATAXIA [None]
  - BLOOD GLUCOSE FLUCTUATION [None]
  - BLOOD PRESSURE AMBULATORY ABNORMAL [None]
  - CONFUSIONAL STATE [None]
  - DEHYDRATION [None]
  - DIARRHOEA [None]
  - DIZZINESS [None]
  - DRUG ADMINISTRATION ERROR [None]
  - DYSPNOEA [None]
  - ELECTROLYTE IMBALANCE [None]
  - FALL [None]
  - FATIGUE [None]
  - GENERAL PHYSICAL HEALTH DETERIORATION [None]
  - HORMONE LEVEL ABNORMAL [None]
  - HYPOKALAEMIA [None]
  - HYPOMAGNESAEMIA [None]
  - HYPOTENSION [None]
  - LETHARGY [None]
  - MALIGNANT NEOPLASM PROGRESSION [None]
  - MEMORY IMPAIRMENT [None]
  - METASTASES TO LIVER [None]
  - NAUSEA [None]
  - NEUROLOGICAL SYMPTOM [None]
  - PAIN [None]
  - RENAL FAILURE [None]
  - SOMNOLENCE [None]
  - URINARY TRACT INFECTION [None]
  - VOMITING [None]
